FAERS Safety Report 18472377 (Version 1)
Quarter: 2020Q4

REPORT INFORMATION
  Report Type: Spontaneous
  Country: US (occurrence: US)
  Receive Date: 20201106
  Receipt Date: 20201106
  Transmission Date: 20210114
  Serious: No
  Sender: FDA-Public Use
  Company Number: US-BAYER-2020-241153

PATIENT
  Age: 72 Year
  Sex: Male

DRUGS (1)
  1. MIRALAX [Suspect]
     Active Substance: POLYETHYLENE GLYCOL 3350
     Indication: COLONOSCOPY
     Dosage: 8 OZ IN 64 OZ OF FLUID
     Route: 048
     Dates: start: 20201105

REACTIONS (3)
  - Off label use [None]
  - Expired product administered [Unknown]
  - Drug ineffective for unapproved indication [Unknown]
